FAERS Safety Report 5986317-8 (Version None)
Quarter: 2008Q4

REPORT INFORMATION
  Report Type: 
  Country: None (occurrence: None)
  Receive Date: 20081209
  Receipt Date: 20080407
  Transmission Date: 20090506
  Serious: No
  Sender: FDA-Public Use
  Company Number: US-AMGEN-KDL273173

PATIENT
  Sex: Female

DRUGS (3)
  1. ENBREL [Suspect]
     Indication: PSORIASIS
     Route: 058
     Dates: start: 20080301
  2. CRESTOR [Concomitant]
  3. BENICAR [Concomitant]

REACTIONS (2)
  - OEDEMA PERIPHERAL [None]
  - PSORIASIS [None]
